FAERS Safety Report 14401014 (Version 6)
Quarter: 2021Q3

REPORT INFORMATION
  Report Type: Report from Study
  Country: US (occurrence: US)
  Receive Date: 20180117
  Receipt Date: 20210706
  Transmission Date: 20211014
  Serious: Yes (Death, Hospitalization, Other)
  Sender: FDA-Public Use
  Company Number: US-TAKEDA-2018TUS001108

PATIENT
  Age: 45 Year
  Sex: Male

DRUGS (13)
  1. SULFADIAZINE. [Concomitant]
     Active Substance: SULFADIAZINE
     Dosage: UNK
     Route: 065
  2. AZITHROMYCIN ANHYDROUS. [Concomitant]
     Active Substance: AZITHROMYCIN ANHYDROUS
     Dosage: UNK
     Route: 065
  3. TACROLIMUS. [Concomitant]
     Active Substance: TACROLIMUS
     Dosage: UNK
     Route: 065
  4. KEPPRA [Concomitant]
     Active Substance: LEVETIRACETAM
     Dosage: UNK
     Route: 065
  5. ACYCLOVIR. [Concomitant]
     Active Substance: ACYCLOVIR
     Dosage: UNK
     Route: 065
  6. PONATINIB [Suspect]
     Active Substance: PONATINIB
     Dosage: 30 MILLIGRAM, QD
     Route: 048
  7. PONATINIB [Suspect]
     Active Substance: PONATINIB
     Dosage: 15 MILLIGRAM, QD
     Route: 048
  8. PONATINIB [Suspect]
     Active Substance: PONATINIB
     Dosage: 30 MILLIGRAM, QD
     Route: 048
  9. SINGULAIR [Concomitant]
     Active Substance: MONTELUKAST SODIUM
     Dosage: UNK
     Route: 065
  10. PONATINIB [Suspect]
     Active Substance: PONATINIB
     Indication: ACUTE LYMPHOCYTIC LEUKAEMIA RECURRENT
     Dosage: 15 MILLIGRAM, QD
     Route: 048
     Dates: start: 201712
  11. PONATINIB [Suspect]
     Active Substance: PONATINIB
     Dosage: 30 MILLIGRAM, QD
     Route: 048
  12. PREDNISONE. [Concomitant]
     Active Substance: PREDNISONE
     Dosage: UNK
     Route: 065
  13. MAGNESIUM [Concomitant]
     Active Substance: MAGNESIUM
     Dosage: UNK
     Route: 065

REACTIONS (17)
  - Skin lesion [Unknown]
  - Gastrooesophageal reflux disease [Unknown]
  - Nasopharyngitis [Unknown]
  - Pulmonary hypertension [Unknown]
  - Graft versus host disease [Unknown]
  - Blood count abnormal [Unknown]
  - Thrombocytopenia [Unknown]
  - Pneumonia [Unknown]
  - Subdural haematoma [Unknown]
  - Acute lymphocytic leukaemia [Recovered/Resolved]
  - Blood magnesium decreased [Unknown]
  - Obliterative bronchiolitis [Unknown]
  - Cough [Unknown]
  - Dry eye [Unknown]
  - Tachycardia [Unknown]
  - Death [Fatal]
  - Ejection fraction decreased [Unknown]

NARRATIVE: CASE EVENT DATE: 20180213
